FAERS Safety Report 4338046-4 (Version None)
Quarter: 2004Q1

REPORT INFORMATION
  Report Type: 
  Country: None (occurrence: None)
  Receive Date: 20040329
  Receipt Date: 20040128
  Transmission Date: 20041129
  Serious: Yes (Other)
  Sender: FDA-Public Use
  Company Number: US_0401100256

PATIENT
  Age: 16 Year
  Sex: Female
  Weight: 83 kg

DRUGS (1)
  1. STRATTERA [Suspect]
     Indication: ATTENTION DEFICIT/HYPERACTIVITY DISORDER
     Dosage: 80 MG/DAY
     Dates: start: 20031229, end: 20040127

REACTIONS (1)
  - HYPERTENSION [None]
